FAERS Safety Report 7624745-5 (Version None)
Quarter: 2011Q3

REPORT INFORMATION
  Report Type: 
  Country: None (occurrence: None)
  Receive Date: 20110720
  Receipt Date: 20100818
  Transmission Date: 20111222
  Serious: Yes (Other)
  Sender: FDA-Public Use
  Company Number: US-BAYER-200936641NA

PATIENT
  Age: 79 Year
  Sex: Male
  Weight: 69.091 kg

DRUGS (52)
  1. OMNISCAN [Suspect]
     Dates: start: 20061127, end: 20061127
  2. SPIRONOLACTONE [Concomitant]
  3. COREG [Concomitant]
     Dates: start: 20060101, end: 20070101
  4. AMITRIPTYLINE HCL [Concomitant]
  5. RENAL [VIT C,VIT H,B5,B12,B9,B3,B6,B2,B1 HCL] [Concomitant]
  6. FELODIPINE [Concomitant]
     Dates: start: 20050101, end: 20060101
  7. CARVEDILOL [Concomitant]
     Dates: start: 20070101, end: 20090101
  8. MAGNEVIST [Suspect]
     Indication: NUCLEAR MAGNETIC RESONANCE IMAGING
  9. UNSPECIFIED GBCA [Suspect]
     Dates: start: 20061009, end: 20061009
  10. OMNISCAN [Suspect]
     Dates: start: 20061204, end: 20061204
  11. SIMVASTATIN [Concomitant]
     Indication: BLOOD CHOLESTEROL INCREASED
  12. FUROSEMIDE [Concomitant]
     Indication: CARDIAC FAILURE CONGESTIVE
  13. NEPHROCAPS [Concomitant]
  14. OMNISCAN [Suspect]
  15. MULTIHANCE [Suspect]
     Indication: ANGIOGRAM
  16. PROHANCE [Suspect]
     Indication: NUCLEAR MAGNETIC RESONANCE IMAGING
  17. RENAGEL [Concomitant]
     Indication: PROPHYLAXIS
  18. FOSAMAX [Concomitant]
  19. CEPHALEXIN [Concomitant]
  20. OMNIPAQUE 140 [Concomitant]
     Indication: ANGIOGRAM
  21. CILOSTAZOL [Concomitant]
  22. TRIAMTERENE [Concomitant]
  23. MAGNEVIST [Suspect]
     Indication: ANGIOGRAM
     Dosage: 20 ML, UNK
     Dates: start: 20070517, end: 20070517
  24. OMNISCAN [Suspect]
     Indication: ANGIOGRAM
     Dates: start: 20020313, end: 20020313
  25. PROHANCE [Suspect]
     Indication: ANGIOGRAM
  26. ALBUTEROL SULFATE AUTOHALER [Concomitant]
  27. CLOPIDOGREL [Concomitant]
     Dates: start: 20060101, end: 20070101
  28. HYDRALAZINE HCL [Concomitant]
  29. OMNISCAN [Suspect]
     Route: 042
     Dates: start: 20060503, end: 20060503
  30. OMNISCAN [Suspect]
     Route: 042
     Dates: start: 20060727, end: 20060727
  31. OPTIMARK [Suspect]
     Indication: NUCLEAR MAGNETIC RESONANCE IMAGING
  32. MULTIHANCE [Suspect]
     Indication: NUCLEAR MAGNETIC RESONANCE IMAGING
  33. PROTONIX [Concomitant]
  34. ASPIRIN [Concomitant]
  35. UNSPECIFIED GBCA [Suspect]
     Indication: ANGIOGRAM
     Dates: start: 20051102, end: 20051102
  36. UNSPECIFIED GBCA [Suspect]
     Indication: AORTOGRAM
     Dates: start: 20060503, end: 20060503
  37. OPTIMARK [Suspect]
     Indication: ANGIOGRAM
     Dates: start: 20020313, end: 20020313
  38. PLAVIX [Concomitant]
     Dates: start: 20060101
  39. UNSPECIFIED GBCA [Suspect]
     Dosage: 20 MLGADOLINIUM AND 10 ML OMNIPAQUE
     Dates: start: 20061127, end: 20061127
  40. OMNISCAN [Suspect]
     Indication: NUCLEAR MAGNETIC RESONANCE IMAGING
     Dates: start: 20050923, end: 20050923
  41. OMNISCAN [Suspect]
     Indication: ARTERIOGRAM
     Dates: start: 20051102, end: 20051102
  42. METOPROLOL TARTRATE [Concomitant]
  43. POTASSIUM CHLORIDE [Concomitant]
  44. PLENDIL [Concomitant]
  45. OMNISCAN [Suspect]
     Dates: start: 20060104, end: 20060104
  46. OMNISCAN [Suspect]
     Dates: start: 20061009, end: 20061009
  47. OMNISCAN [Suspect]
     Dates: start: 20061129, end: 20061129
  48. LISINOPRIL [Concomitant]
     Indication: HYPERTENSION
  49. HYDROCHLOROTHIAZIDE [Concomitant]
     Dates: start: 20010101, end: 20020101
  50. ISOSORBIDE DINITRATE [Concomitant]
     Indication: PAIN PROPHYLAXIS
  51. EPOGEN [Concomitant]
  52. NORVASC [Concomitant]

REACTIONS (21)
  - MUSCULOSKELETAL STIFFNESS [None]
  - LICHENIFICATION [None]
  - OEDEMA [None]
  - SKIN TIGHTNESS [None]
  - PULMONARY FUNCTION TEST DECREASED [None]
  - SKIN FIBROSIS [None]
  - SKIN INDURATION [None]
  - RASH [None]
  - PAPULE [None]
  - JOINT RANGE OF MOTION DECREASED [None]
  - PEAU D'ORANGE [None]
  - NEPHROGENIC SYSTEMIC FIBROSIS [None]
  - PAIN [None]
  - SKIN HYPERTROPHY [None]
  - MOTOR DYSFUNCTION [None]
  - DRY SKIN [None]
  - SKIN DISORDER [None]
  - SKIN ULCER [None]
  - PIGMENTATION DISORDER [None]
  - OEDEMA PERIPHERAL [None]
  - SKIN EXFOLIATION [None]
